FAERS Safety Report 8412399-X (Version None)
Quarter: 2012Q2

REPORT INFORMATION
  Report Type: 
  Country: None (occurrence: None)
  Receive Date: 20120605
  Receipt Date: 20120523
  Transmission Date: 20120825
  Serious: Yes (Death, Hospitalization)
  Sender: FDA-Public Use
  Company Number: JP-ELI_LILLY_AND_COMPANY-JP201204008841

PATIENT
  Sex: Male
  Weight: 51.9 kg

DRUGS (8)
  1. RAMELTEON [Concomitant]
     Indication: INSOMNIA
     Dosage: 8 MG, UNK
     Route: 048
     Dates: start: 20111102, end: 20120202
  2. MEXITIL [Concomitant]
     Indication: DIABETIC NEUROPATHY
     Dosage: 100 MG, TID
     Route: 048
     Dates: start: 20111102, end: 20120106
  3. DEPAS [Concomitant]
     Dosage: 0.5 MG, BID
     Route: 048
     Dates: start: 20120203
  4. CYMBALTA [Suspect]
     Indication: DIABETIC NEUROPATHY
     Dosage: 20 MG, QD
     Route: 048
     Dates: start: 20120305, end: 20120410
  5. HUMALOG [Concomitant]
     Indication: TYPE 2 DIABETES MELLITUS
     Dosage: 16 IU, BID
     Route: 058
     Dates: start: 20110806
  6. DEPAS [Concomitant]
     Indication: DIABETIC NEUROPATHY
     Dosage: 0.5 MG, QD
     Route: 048
     Dates: start: 20120107, end: 20120202
  7. LENDORMIN [Concomitant]
     Indication: INSOMNIA
     Dosage: 0.25 MG, UNK
     Route: 048
     Dates: start: 20111102, end: 20120202
  8. ROHYPNOL [Concomitant]
     Indication: INSOMNIA
     Dosage: 1 MG, QD
     Route: 048
     Dates: start: 20120203

REACTIONS (2)
  - INTERSTITIAL LUNG DISEASE [None]
  - PNEUMOTHORAX [None]
